FAERS Safety Report 9689230 (Version 3)
Quarter: 2013Q4

REPORT INFORMATION
  Report Type: Report from Study
  Country: US (occurrence: US)
  Receive Date: 20131114
  Receipt Date: 20131120
  Transmission Date: 20140711
  Serious: Yes (Life-Threatening, Other)
  Sender: FDA-Public Use
  Company Number: US-ROCHE-1158417

PATIENT
  Sex: 0

DRUGS (8)
  1. RITUXIMAB [Suspect]
     Indication: CENTRAL NERVOUS SYSTEM LYMPHOMA
     Dosage: DAY 2  (14-DAY CYCLE) FOR SIX DOSES
     Route: 042
  2. METHOTREXATE [Suspect]
     Indication: CENTRAL NERVOUS SYSTEM LYMPHOMA
     Dosage: DAY 1 (14-DAY CYCLE) 8 GRAMS/M2 IV OVER 4 HRS
     Route: 042
  3. TEMOZOLOMIDE [Suspect]
     Indication: CENTRAL NERVOUS SYSTEM LYMPHOMA
     Dosage: DAY 7-11 (14-DAY CYCLE) ODD CYCLES ONLY
     Route: 048
  4. LEUCOVORIN [Suspect]
     Indication: CENTRAL NERVOUS SYSTEM LYMPHOMA
     Dosage: DAY 2, 14 DAYS CYCLE, EVERY 6 HRS, UNTIL METHOTREXATE { 0.05 MM
     Route: 065
  5. SULFAMETHOXAZOLE/TRIMETHOPRIM [Concomitant]
  6. DAPSON [Concomitant]
  7. ACYCLOVIR [Concomitant]
  8. VALACYCLOVIR [Concomitant]

REACTIONS (41)
  - Haemoglobin abnormal [Unknown]
  - Lymphopenia [Unknown]
  - Neutropenia [Unknown]
  - Thrombocytopenia [Unknown]
  - Diarrhoea [Unknown]
  - Nausea [Unknown]
  - Infection [Unknown]
  - Alanine aminotransferase abnormal [Unknown]
  - Aspartate aminotransferase abnormal [Unknown]
  - Blood glucose increased [Unknown]
  - Blood potassium decreased [Unknown]
  - Blood potassium increased [Unknown]
  - Blood sodium decreased [Unknown]
  - Muscular weakness [Unknown]
  - Pain [Unknown]
  - Pneumonitis [Unknown]
  - White blood cell disorder [Unknown]
  - Arrhythmia [Unknown]
  - Hypertension [Unknown]
  - Fatigue [Unknown]
  - Insomnia [Unknown]
  - Dehydration [Unknown]
  - Dyspepsia [Unknown]
  - Vomiting [Unknown]
  - Oedema peripheral [Unknown]
  - Blood albumin decreased [Unknown]
  - Alkalosis [Unknown]
  - Blood bilirubin abnormal [Unknown]
  - Blood calcium decreased [Unknown]
  - Gamma-glutamyltransferase abnormal [Unknown]
  - Blood phosphorus decreased [Unknown]
  - Blood sodium increased [Unknown]
  - Blood uric acid increased [Unknown]
  - Ataxia [Unknown]
  - Confusional state [Unknown]
  - Dizziness [Unknown]
  - Mood altered [Unknown]
  - Syncope [Unknown]
  - Hypoxia [Unknown]
  - Renal failure [Unknown]
  - Thrombosis [Unknown]
